FAERS Safety Report 22962764 (Version 2)
Quarter: 2024Q3

REPORT INFORMATION
  Report Type: Spontaneous
  Country: FR (occurrence: FR)
  Receive Date: 20230920
  Receipt Date: 20240726
  Transmission Date: 20241017
  Serious: Yes (Death)
  Sender: PFIZER
  Company Number: None

PATIENT
  Age: 64 Year
  Sex: Male

DRUGS (6)
  1. RITUXIMAB [Suspect]
     Active Substance: RITUXIMAB
     Indication: B-cell lymphoma
     Dosage: 1400 MG, EVERY 2 MONTHS
     Route: 058
     Dates: start: 20221121
  2. RITUXIMAB [Suspect]
     Active Substance: RITUXIMAB
     Dosage: 600 MG, EVERY 28 DAYS
     Route: 042
     Dates: start: 20220505, end: 20220913
  3. MIRTAZAPINE [Suspect]
     Active Substance: MIRTAZAPINE
     Indication: Depression
     Dosage: 15 MG, 1X/DAY
     Route: 048
  4. VALACYCLOVIR HYDROCHLORIDE [Suspect]
     Active Substance: VALACYCLOVIR HYDROCHLORIDE
     Indication: Infection prophylaxis
     Dosage: 1000 MG, 1X/DAY
     Route: 048
     Dates: start: 20230605
  5. IMBRUVICA [Suspect]
     Active Substance: IBRUTINIB
     Indication: B-cell lymphoma
     Dosage: 560 MG, 1X/DAY
     Route: 048
     Dates: start: 20230608
  6. BACTRIM [Suspect]
     Active Substance: SULFAMETHOXAZOLE\TRIMETHOPRIM
     Indication: Infection prophylaxis
     Dosage: 3 DF, WEEKLY
     Route: 048
     Dates: start: 20230605

REACTIONS (2)
  - Death [Fatal]
  - Off label use [Unknown]

NARRATIVE: CASE EVENT DATE: 20221121
